FAERS Safety Report 13071577 (Version 3)
Quarter: 2018Q4

REPORT INFORMATION
  Report Type: Spontaneous
  Country: US (occurrence: US)
  Receive Date: 20161229
  Receipt Date: 20181107
  Transmission Date: 20190204
  Serious: No
  Sender: FDA-Public Use
  Company Number: US-PFIZER INC-2016602109

PATIENT
  Age: 69 Year
  Sex: Female

DRUGS (1)
  1. XELJANZ XR [Suspect]
     Active Substance: TOFACITINIB CITRATE
     Dosage: 11 MG, UNK
     Dates: end: 201712

REACTIONS (3)
  - Pain [Unknown]
  - Hypersensitivity [Unknown]
  - Malaise [Unknown]

NARRATIVE: CASE EVENT DATE: 20161227
